FAERS Safety Report 9426981 (Version 1)
Quarter: 2013Q3

REPORT INFORMATION
  Report Type: Report from Study
  Country: US (occurrence: US)
  Receive Date: 20130730
  Receipt Date: 20130730
  Transmission Date: 20140515
  Serious: No
  Sender: FDA-Public Use
  Company Number: US-ABBOTT-12P-163-0973110-00

PATIENT
  Age: 68 Year
  Sex: Male
  Weight: 113.5 kg

DRUGS (17)
  1. NIASPAN (COATED) 500MG [Suspect]
     Indication: HIGH DENSITY LIPOPROTEIN DECREASED
     Dosage: AT BEDTIME
     Dates: start: 201108
  2. ASA [Concomitant]
     Indication: PRODUCT USED FOR UNKNOWN INDICATION
  3. VYTORIN [Concomitant]
     Indication: PRODUCT USED FOR UNKNOWN INDICATION
  4. GLUCOSAMINE [Concomitant]
     Indication: PRODUCT USED FOR UNKNOWN INDICATION
  5. ANDROGEL [Concomitant]
     Indication: PRODUCT USED FOR UNKNOWN INDICATION
  6. COQ10 [Concomitant]
     Indication: PRODUCT USED FOR UNKNOWN INDICATION
  7. VITAMIN B-12 [Concomitant]
     Indication: PRODUCT USED FOR UNKNOWN INDICATION
  8. LISINOPRIL [Concomitant]
     Indication: PRODUCT USED FOR UNKNOWN INDICATION
  9. MULTIVITAMIN [Concomitant]
     Indication: PRODUCT USED FOR UNKNOWN INDICATION
  10. FISH OIL [Concomitant]
     Indication: PRODUCT USED FOR UNKNOWN INDICATION
  11. CIALIS [Concomitant]
     Indication: PRODUCT USED FOR UNKNOWN INDICATION
  12. GENERIC FLOMAX [Concomitant]
     Indication: PRODUCT USED FOR UNKNOWN INDICATION
  13. KCL [Concomitant]
     Indication: PRODUCT USED FOR UNKNOWN INDICATION
  14. METOPROLOL [Concomitant]
     Indication: PRODUCT USED FOR UNKNOWN INDICATION
  15. LEVOXYL [Concomitant]
     Indication: PRODUCT USED FOR UNKNOWN INDICATION
  16. GENERIC LASIX [Concomitant]
     Indication: PRODUCT USED FOR UNKNOWN INDICATION
  17. APPLE PECTIN [Concomitant]
     Indication: PRODUCT USED FOR UNKNOWN INDICATION

REACTIONS (3)
  - Flushing [Recovered/Resolved]
  - Paraesthesia [Recovered/Resolved]
  - Feeling hot [Recovered/Resolved]
